FAERS Safety Report 5641575-4 (Version None)
Quarter: 2008Q1

REPORT INFORMATION
  Report Type: 
  Country: None (occurrence: None)
  Receive Date: 20080227
  Receipt Date: 20071114
  Transmission Date: 20080703
  Serious: No
  Sender: FDA-Public Use
  Company Number: A0694372A

PATIENT
  Age: 32 Year
  Sex: Male

DRUGS (1)
  1. NICORETTE (MINT) [Suspect]
     Dates: start: 20071108, end: 20071111

REACTIONS (2)
  - ABDOMINAL PAIN UPPER [None]
  - ASTHENIA [None]
